FAERS Safety Report 20762626 (Version 1)
Quarter: 2022Q2

REPORT INFORMATION
  Report Type: Spontaneous
  Country: US (occurrence: US)
  Receive Date: 20220428
  Receipt Date: 20220428
  Transmission Date: 20220720
  Serious: Yes (Death, Hospitalization)
  Sender: FDA-Public Use
  Company Number: US-MYLANLABS-2022M1030892

PATIENT
  Age: 30 Year
  Sex: Female

DRUGS (6)
  1. ACARBOSE [Suspect]
     Active Substance: ACARBOSE
     Indication: Hyperammonaemia
     Dosage: UNK
     Route: 065
  2. POLYETHYLENE GLYCOL 3350 [Suspect]
     Active Substance: POLYETHYLENE GLYCOL 3350
     Indication: Hyperammonaemia
     Dosage: UNK
     Route: 065
  3. LACTULOSE [Suspect]
     Active Substance: LACTULOSE
     Indication: Hyperammonaemia
     Dosage: UNK
     Route: 065
  4. LEVOCARNITINE [Suspect]
     Active Substance: LEVOCARNITINE
     Indication: Hyperammonaemia
     Dosage: UNK
     Route: 065
  5. RIFAXIMIN [Suspect]
     Active Substance: RIFAXIMIN
     Indication: Hyperammonaemia
     Dosage: UNK
     Route: 065
  6. SODIUM BENZOATE [Suspect]
     Active Substance: SODIUM BENZOATE
     Indication: Hyperammonaemia
     Dosage: UNK
     Route: 065

REACTIONS (2)
  - Drug ineffective [Fatal]
  - Off label use [Unknown]
